FAERS Safety Report 19054073 (Version 4)
Quarter: 2021Q2

REPORT INFORMATION
  Report Type: Spontaneous
  Country: US (occurrence: US)
  Receive Date: 20210325
  Receipt Date: 20210521
  Transmission Date: 20210717
  Serious: Yes (Other)
  Sender: FDA-Public Use
  Company Number: US-ROCHE-2797405

PATIENT
  Sex: Male

DRUGS (3)
  1. HEMLIBRA [Suspect]
     Active Substance: EMICIZUMAB-KXWH
     Indication: FACTOR VIII DEFICIENCY
     Dosage: 150 MG/ML
     Route: 058
     Dates: start: 20210316
  2. HEMLIBRA [Suspect]
     Active Substance: EMICIZUMAB-KXWH
     Route: 058
     Dates: start: 20210316
  3. HEMLIBRA [Suspect]
     Active Substance: EMICIZUMAB-KXWH
     Dosage: DOSAGE STRENGTH: 150 MG/ML
     Route: 058
     Dates: start: 20210316

REACTIONS (3)
  - Gingival bleeding [Unknown]
  - Haemarthrosis [Recovered/Resolved]
  - Blood urine present [Recovered/Resolved]
